FAERS Safety Report 8594033-1 (Version None)
Quarter: 2012Q3

REPORT INFORMATION
  Report Type: 
  Country: None (occurrence: None)
  Receive Date: 20120814
  Receipt Date: 20120806
  Transmission Date: 20120928
  Serious: Yes (Hospitalization)
  Sender: FDA-Public Use
  Company Number: JP-B.I. PHARMACEUTICALS,INC./RIDGEFIELD-2012-BP-16299NB

PATIENT
  Age: 73 Year
  Sex: Female
  Weight: 46 kg

DRUGS (9)
  1. ENALAPRIL MALEATE [Concomitant]
     Dosage: 2.51 MG
     Route: 048
     Dates: start: 20111212
  2. PRADAXA [Suspect]
     Indication: ATRIAL FIBRILLATION
     Dosage: 220 MG
     Route: 048
     Dates: start: 20111205, end: 20120107
  3. OMEPRAZOLE [Concomitant]
     Dosage: 20 MG
     Route: 048
     Dates: start: 20111205
  4. ADALAT CC [Concomitant]
     Dosage: 20 MG
     Route: 048
     Dates: start: 20111207
  5. VESICARE [Concomitant]
     Dosage: 5 MG
     Route: 048
     Dates: start: 20111214
  6. ALDACTONE [Concomitant]
     Dosage: 25 MG
     Route: 048
     Dates: start: 20111205
  7. CARVEDILOL [Concomitant]
     Dosage: 1.25 MG
     Route: 048
     Dates: start: 20111208
  8. DIGOXIN [Concomitant]
     Dosage: 0.25 MG
     Route: 048
     Dates: start: 20111208
  9. LASIX [Concomitant]
     Dosage: 20 MG
     Route: 048
     Dates: start: 20111208

REACTIONS (1)
  - CEREBRAL INFARCTION [None]
